FAERS Safety Report 13086700 (Version 1)
Quarter: 2017Q1

REPORT INFORMATION
  Report Type: Spontaneous
  Country: GB (occurrence: GB)
  Receive Date: 20170104
  Receipt Date: 20170104
  Transmission Date: 20170428
  Serious: Yes (Death, Other)
  Sender: FDA-Public Use
  Company Number: GB-BIOMARINAP-GB-2016-112276

PATIENT
  Age: 37 Year
  Sex: Male

DRUGS (1)
  1. ALDURAZYME [Suspect]
     Active Substance: LARONIDASE
     Indication: MUCOPOLYSACCHARIDOSIS I
     Dosage: 0.58 MG/KG, UNK
     Route: 065
     Dates: start: 2001, end: 2016

REACTIONS (3)
  - Pneumonia [Unknown]
  - Respiratory disorder [Unknown]
  - Disease progression [Fatal]
